FAERS Safety Report 15699555 (Version 1)
Quarter: 2018Q4

REPORT INFORMATION
  Report Type: Spontaneous
  Country: CN (occurrence: CN)
  Receive Date: 20181207
  Receipt Date: 20181207
  Transmission Date: 20190205
  Serious: Yes (Hospitalization)
  Sender: FDA-Public Use
  Company Number: CN-SA-2018SA331248

PATIENT
  Age: 57 Year
  Sex: Female
  Weight: 63.5 kg

DRUGS (5)
  1. CYCLOPHOSPHAMIDE. [Suspect]
     Active Substance: CYCLOPHOSPHAMIDE
     Indication: CHEMOTHERAPY
     Dosage: 1 G, QD
     Route: 041
     Dates: start: 20180921, end: 20180921
  2. SODIUM CHLORIDE. [Concomitant]
     Active Substance: SODIUM CHLORIDE
     Dosage: 250 UNK
     Route: 041
     Dates: start: 20180921, end: 20180921
  3. SODIUM CHLORIDE. [Concomitant]
     Active Substance: SODIUM CHLORIDE
     Dosage: 100 ML, QD
     Route: 041
     Dates: start: 20180921, end: 20180921
  4. DOCETAXEL. [Suspect]
     Active Substance: DOCETAXEL
     Indication: CHEMOTHERAPY
     Dosage: 120 MG, QD
     Route: 041
     Dates: start: 20180921, end: 20180921
  5. DOCETAXEL. [Suspect]
     Active Substance: DOCETAXEL
     Indication: BREAST CANCER

REACTIONS (6)
  - Myalgia [Recovering/Resolving]
  - Insomnia [Recovering/Resolving]
  - Abdominal pain [Recovering/Resolving]
  - Granulocyte count decreased [Recovering/Resolving]
  - Hypoaesthesia [Recovering/Resolving]
  - White blood cell count decreased [Recovering/Resolving]

NARRATIVE: CASE EVENT DATE: 20180925
